FAERS Safety Report 19389075 (Version 1)
Quarter: 2021Q2

REPORT INFORMATION
  Report Type: Spontaneous
  Country: US (occurrence: US)
  Receive Date: 20210608
  Receipt Date: 20210608
  Transmission Date: 20210717
  Serious: No
  Sender: FDA-Public Use
  Company Number: None

PATIENT
  Age: 69 Year
  Sex: Male
  Weight: 113.4 kg

DRUGS (29)
  1. ASPIRIN. [Concomitant]
     Active Substance: ASPIRIN
  2. TAMSULOSIN [Concomitant]
     Active Substance: TAMSULOSIN
  3. JANUMET [Concomitant]
     Active Substance: METFORMIN HYDROCHLORIDE\SITAGLIPTIN PHOSPHATE
  4. IRON [Concomitant]
     Active Substance: IRON
  5. LANTUS [Concomitant]
     Active Substance: INSULIN GLARGINE
  6. TURMERIC [Concomitant]
     Active Substance: HERBALS\TURMERIC
  7. MAGNESIUM [Concomitant]
     Active Substance: MAGNESIUM
  8. ALLOPURINOL 100MG TABLET [Suspect]
     Active Substance: ALLOPURINOL
     Indication: GOUT
     Dosage: ?          QUANTITY:10 DF DOSAGE FORM;?
     Route: 048
     Dates: start: 20200318, end: 20200321
  9. LEVOTHYROXINE. [Concomitant]
     Active Substance: LEVOTHYROXINE
  10. SIMVASTATIN. [Concomitant]
     Active Substance: SIMVASTATIN
  11. OIL OF OREGANO [Concomitant]
  12. GARLIC. [Concomitant]
     Active Substance: GARLIC
  13. COREG CR [Concomitant]
     Active Substance: CARVEDILOL PHOSPHATE
  14. DIGITEK [Concomitant]
     Active Substance: DIGOXIN
  15. ENALAPRIL [Concomitant]
     Active Substance: ENALAPRIL
  16. COLCRYS [Concomitant]
     Active Substance: COLCHICINE
  17. ISOSORBIDE MONO NIT ER [Concomitant]
  18. VITAMIN D3 [Concomitant]
     Active Substance: CHOLECALCIFEROL
  19. NOVOLOG [Concomitant]
     Active Substance: INSULIN ASPART
  20. CRANBERRY. [Concomitant]
     Active Substance: CRANBERRY
  21. FUROSEMIDE. [Concomitant]
     Active Substance: FUROSEMIDE
  22. COENZYME Q10 [Concomitant]
     Active Substance: DIETARY SUPPLEMENT\UBIDECARENONE
  23. CLOPIDOGREL [Concomitant]
     Active Substance: CLOPIDOGREL BISULFATE
  24. VITAMIN E [Concomitant]
     Active Substance: .ALPHA.-TOCOPHEROL
  25. ZINC. [Concomitant]
     Active Substance: ZINC
  26. FLAXSEED [Concomitant]
     Active Substance: FLAX SEED
  27. CAYENNE PEPPER [Concomitant]
     Active Substance: CAPSICUM
  28. MULTI VITAMIN MEGA MEN [Concomitant]
  29. BILBERRY EXTRACT [Concomitant]

REACTIONS (4)
  - Muscle spasms [None]
  - Dysstasia [None]
  - Gait inability [None]
  - Muscular weakness [None]
